FAERS Safety Report 21687217 (Version 1)
Quarter: 2022Q4

REPORT INFORMATION
  Report Type: Spontaneous
  Country: US (occurrence: None)
  Receive Date: 20221205
  Receipt Date: 20221205
  Transmission Date: 20230112
  Serious: Yes (Hospitalization)
  Sender: FDA-Public Use
  Company Number: None

PATIENT
  Sex: Female

DRUGS (1)
  1. NIVESTYM [Suspect]
     Active Substance: FILGRASTIM-AAFI
     Indication: Breast cancer
     Dosage: INJECT 1 SYRINGE UNDER THE SKIN DAILY FOR 10 DAYS STARTING 24 HOURS AFTER CHEMOTHERAPY EVERY 21 DAY
     Route: 058
     Dates: start: 202211

REACTIONS (2)
  - Hospitalisation [None]
  - Emergency care [None]
